FAERS Safety Report 20057074 (Version 1)
Quarter: 2021Q4

REPORT INFORMATION
  Report Type: Spontaneous
  Country: US (occurrence: US)
  Receive Date: 20211111
  Receipt Date: 20211111
  Transmission Date: 20220303
  Serious: Yes (Hospitalization)
  Sender: FDA-Public Use
  Company Number: US-ELI_LILLY_AND_COMPANY-US202111001415

PATIENT
  Age: 76 Year
  Sex: Male

DRUGS (3)
  1. TRULICITY [Suspect]
     Active Substance: DULAGLUTIDE
     Indication: Type 2 diabetes mellitus
     Dosage: 3 MG, WEEKLY (1/W)
     Route: 058
     Dates: start: 2019
  2. TRULICITY [Suspect]
     Active Substance: DULAGLUTIDE
     Dosage: 3 MG, WEEKLY (1/W)
     Route: 058
  3. KEPPRA [Suspect]
     Active Substance: LEVETIRACETAM
     Indication: Brain operation
     Dosage: 500 MG, BID
     Route: 065

REACTIONS (4)
  - Central nervous system lesion [Unknown]
  - Blood glucose increased [Unknown]
  - Visual impairment [Unknown]
  - Product dose omission issue [Unknown]

NARRATIVE: CASE EVENT DATE: 20211031
